FAERS Safety Report 23956067 (Version 4)
Quarter: 2025Q3

REPORT INFORMATION
  Report Type: Spontaneous
  Country: EU (occurrence: EU)
  Receive Date: 20240610
  Receipt Date: 20250909
  Transmission Date: 20251021
  Serious: Yes (Hospitalization, Other)
  Sender: MYLAN
  Company Number: EU-JNJFOC-20240561471

PATIENT
  Age: 81 Year
  Sex: Male

DRUGS (48)
  1. ABIRATERONE [Suspect]
     Active Substance: ABIRATERONE
     Indication: Prostate cancer metastatic
  2. ABIRATERONE [Suspect]
     Active Substance: ABIRATERONE
     Indication: Hormone-refractory prostate cancer
     Route: 065
  3. ABIRATERONE [Suspect]
     Active Substance: ABIRATERONE
     Route: 065
  4. ABIRATERONE [Suspect]
     Active Substance: ABIRATERONE
  5. EPLERENONE [Suspect]
     Active Substance: EPLERENONE
     Indication: Hypertension
  6. EPLERENONE [Suspect]
     Active Substance: EPLERENONE
     Route: 065
  7. EPLERENONE [Suspect]
     Active Substance: EPLERENONE
     Route: 065
  8. EPLERENONE [Suspect]
     Active Substance: EPLERENONE
  9. OMEPRAZOLE [Concomitant]
     Active Substance: OMEPRAZOLE
     Indication: Product used for unknown indication
  10. OMEPRAZOLE [Concomitant]
     Active Substance: OMEPRAZOLE
     Route: 065
  11. OMEPRAZOLE [Concomitant]
     Active Substance: OMEPRAZOLE
     Route: 065
  12. OMEPRAZOLE [Concomitant]
     Active Substance: OMEPRAZOLE
  13. AMLODIPINE [Concomitant]
     Active Substance: AMLODIPINE BESYLATE
     Indication: Product used for unknown indication
  14. AMLODIPINE [Concomitant]
     Active Substance: AMLODIPINE BESYLATE
     Route: 065
  15. AMLODIPINE [Concomitant]
     Active Substance: AMLODIPINE BESYLATE
     Route: 065
  16. AMLODIPINE [Concomitant]
     Active Substance: AMLODIPINE BESYLATE
  17. LEVOTHYROXINE [Concomitant]
     Active Substance: LEVOTHYROXINE
     Indication: Product used for unknown indication
  18. LEVOTHYROXINE [Concomitant]
     Active Substance: LEVOTHYROXINE
     Route: 065
  19. LEVOTHYROXINE [Concomitant]
     Active Substance: LEVOTHYROXINE
     Route: 065
  20. LEVOTHYROXINE [Concomitant]
     Active Substance: LEVOTHYROXINE
  21. METOPROLOL TARTRATE [Concomitant]
     Active Substance: METOPROLOL TARTRATE
     Indication: Product used for unknown indication
  22. METOPROLOL TARTRATE [Concomitant]
     Active Substance: METOPROLOL TARTRATE
     Route: 065
  23. METOPROLOL TARTRATE [Concomitant]
     Active Substance: METOPROLOL TARTRATE
     Route: 065
  24. METOPROLOL TARTRATE [Concomitant]
     Active Substance: METOPROLOL TARTRATE
  25. PERINDOPRIL [Concomitant]
     Active Substance: PERINDOPRIL
     Indication: Product used for unknown indication
  26. PERINDOPRIL [Concomitant]
     Active Substance: PERINDOPRIL
     Route: 065
  27. PERINDOPRIL [Concomitant]
     Active Substance: PERINDOPRIL
     Route: 065
  28. PERINDOPRIL [Concomitant]
     Active Substance: PERINDOPRIL
  29. FUROSEMIDE [Concomitant]
     Active Substance: FUROSEMIDE
     Indication: Product used for unknown indication
  30. FUROSEMIDE [Concomitant]
     Active Substance: FUROSEMIDE
     Route: 042
  31. FUROSEMIDE [Concomitant]
     Active Substance: FUROSEMIDE
     Route: 042
  32. FUROSEMIDE [Concomitant]
     Active Substance: FUROSEMIDE
  33. RIVAROXABAN [Concomitant]
     Active Substance: RIVAROXABAN
     Indication: Product used for unknown indication
  34. RIVAROXABAN [Concomitant]
     Active Substance: RIVAROXABAN
     Route: 065
  35. RIVAROXABAN [Concomitant]
     Active Substance: RIVAROXABAN
     Route: 065
  36. RIVAROXABAN [Concomitant]
     Active Substance: RIVAROXABAN
  37. PREDNISONE [Concomitant]
     Active Substance: PREDNISONE
     Indication: Hormone-refractory prostate cancer
  38. PREDNISONE [Concomitant]
     Active Substance: PREDNISONE
     Route: 065
  39. PREDNISONE [Concomitant]
     Active Substance: PREDNISONE
     Route: 065
  40. PREDNISONE [Concomitant]
     Active Substance: PREDNISONE
  41. DUTASTERIDE [Concomitant]
     Active Substance: DUTASTERIDE
     Indication: Prostate cancer
  42. DUTASTERIDE [Concomitant]
     Active Substance: DUTASTERIDE
     Indication: Hormone-refractory prostate cancer
     Route: 065
  43. DUTASTERIDE [Concomitant]
     Active Substance: DUTASTERIDE
     Route: 065
  44. DUTASTERIDE [Concomitant]
     Active Substance: DUTASTERIDE
  45. TAMSULOSIN [Concomitant]
     Active Substance: TAMSULOSIN
     Indication: Prostate cancer
  46. TAMSULOSIN [Concomitant]
     Active Substance: TAMSULOSIN
     Indication: Hormone-refractory prostate cancer
     Route: 065
  47. TAMSULOSIN [Concomitant]
     Active Substance: TAMSULOSIN
     Route: 065
  48. TAMSULOSIN [Concomitant]
     Active Substance: TAMSULOSIN

REACTIONS (8)
  - Acquired apparent mineralocorticoid excess [Recovered/Resolved]
  - Metabolic alkalosis [Unknown]
  - Blood corticotrophin increased [Recovered/Resolved]
  - Cardiac failure acute [Recovered/Resolved]
  - Secondary hypertension [Recovered/Resolved]
  - Hypokalaemia [Recovered/Resolved]
  - Drug ineffective [Unknown]
  - Medication error [Unknown]
